FAERS Safety Report 15608212 (Version 1)
Quarter: 2018Q4

REPORT INFORMATION
  Report Type: Spontaneous
  Country: US (occurrence: US)
  Receive Date: 20181107
  Receipt Date: 20181107
  Transmission Date: 20190205
  Serious: Yes (Hospitalization)
  Sender: FDA-Public Use
  Company Number: None

PATIENT
  Sex: Female

DRUGS (1)
  1. GLATIRAMER [Suspect]
     Active Substance: GLATIRAMER
     Indication: MULTIPLE SCLEROSIS
     Route: 058
     Dates: start: 20180516

REACTIONS (6)
  - Pain [None]
  - Gait disturbance [None]
  - Loss of personal independence in daily activities [None]
  - Fatigue [None]
  - Muscular weakness [None]
  - Fall [None]
